FAERS Safety Report 9912230 (Version 2)
Quarter: 2014Q1

REPORT INFORMATION
  Report Type: Spontaneous
  Country: US (occurrence: US)
  Receive Date: 20140220
  Receipt Date: 20140220
  Transmission Date: 20141002
  Serious: Yes (Life-Threatening)
  Sender: FDA-Public Use
  Company Number: US-SA-2013SA114247

PATIENT
  Age: 79 Year
  Sex: Male
  Weight: 78.01 kg

DRUGS (13)
  1. ZALTRAP [Suspect]
     Indication: COLON CANCER
     Dosage: DOSE: 4 MG/KG (323 MG)
     Route: 065
     Dates: start: 20130916
  2. ZALTRAP [Suspect]
     Indication: COLON CANCER
     Dosage: DOSE: 4 MG/KG (323 MG)
     Route: 065
     Dates: start: 20130930
  3. ZALTRAP [Suspect]
     Indication: COLON CANCER
     Dosage: DOSE: 4 MG/KG (323 MG)
     Route: 065
     Dates: start: 20131014, end: 20131017
  4. FOLINIC ACID [Suspect]
     Route: 065
     Dates: start: 20130916
  5. FOLINIC ACID [Suspect]
     Route: 065
     Dates: start: 20130930
  6. FOLINIC ACID [Suspect]
     Route: 065
     Dates: start: 20131014
  7. 5-FU [Suspect]
     Route: 065
     Dates: start: 20130916
  8. 5-FU [Suspect]
     Route: 065
     Dates: start: 20130930
  9. 5-FU [Suspect]
     Route: 065
     Dates: start: 20131014
  10. IRINOTECAN [Suspect]
     Route: 065
     Dates: start: 20130916
  11. IRINOTECAN [Suspect]
     Route: 065
     Dates: start: 20130930
  12. IRINOTECAN [Suspect]
     Route: 065
     Dates: start: 20131014
  13. METOPROLOL [Concomitant]
     Indication: HYPERTENSION
     Route: 065

REACTIONS (5)
  - Cerebral haemorrhage [Recovered/Resolved]
  - Hypertension [Recovered/Resolved]
  - Nausea [Recovered/Resolved]
  - Vomiting [Recovered/Resolved]
  - Headache [Recovered/Resolved]
